FAERS Safety Report 15406452 (Version 1)
Quarter: 2018Q3

REPORT INFORMATION
  Report Type: Spontaneous
  Country: US (occurrence: US)
  Receive Date: 20180919
  Receipt Date: 20180919
  Transmission Date: 20181010
  Serious: Yes (Hospitalization)
  Sender: FDA-Public Use
  Company Number: None

PATIENT
  Age: 5 Year
  Sex: Male

DRUGS (11)
  1. ADVAIR HFA [Concomitant]
     Active Substance: FLUTICASONE PROPIONATE\SALMETEROL XINAFOATE
  2. LEVALBUTEROL. [Concomitant]
     Active Substance: LEVALBUTEROL
  3. NYSTATIN. [Concomitant]
     Active Substance: NYSTATIN
  4. CETIRIZINE [Concomitant]
     Active Substance: CETIRIZINE HYDROCHLORIDE
  5. DIURIL [Concomitant]
     Active Substance: CHLOROTHIAZIDE
  6. NYSTOP [Concomitant]
     Active Substance: NYSTATIN
  7. FUROSEMIDE. [Concomitant]
     Active Substance: FUROSEMIDE
  8. TRACLEER [Concomitant]
     Active Substance: BOSENTAN
  9. POT CHLORIDE [Concomitant]
     Active Substance: POTASSIUM CHLORIDE
  10. REVATIO [Suspect]
     Active Substance: SILDENAFIL CITRATE
     Indication: PULMONARY ARTERIAL HYPERTENSION
     Dosage: ?          OTHER ROUTE:VIA G?TUBE?
     Dates: start: 20180112
  11. PREDNISOLONE. [Concomitant]
     Active Substance: PREDNISOLONE

REACTIONS (1)
  - Cardiac imaging procedure [None]

NARRATIVE: CASE EVENT DATE: 20180912
